FAERS Safety Report 10155030 (Version 3)
Quarter: 2014Q2

REPORT INFORMATION
  Report Type: Spontaneous
  Country: US (occurrence: US)
  Receive Date: 20140506
  Receipt Date: 20140605
  Transmission Date: 20141212
  Serious: Yes (Life-Threatening, Hospitalization)
  Sender: FDA-Public Use
  Company Number: US-JNJFOC-20140501201

PATIENT
  Age: 81 Year
  Sex: Male
  Weight: 95.3 kg

DRUGS (10)
  1. XARELTO [Suspect]
     Indication: CEREBROVASCULAR ACCIDENT PROPHYLAXIS
     Route: 048
  2. XARELTO [Suspect]
     Indication: ATRIAL FIBRILLATION
     Route: 048
  3. DILTIAZEM [Concomitant]
     Indication: HYPERTENSION
     Route: 065
  4. LOSARTAN [Concomitant]
     Indication: HYPERTENSION
     Route: 065
  5. ATORVASTATIN [Concomitant]
     Indication: HYPERLIPIDAEMIA
     Route: 065
  6. FINASTERIDE [Concomitant]
     Indication: BENIGN PROSTATIC HYPERPLASIA
     Route: 065
  7. LIRAGLUTIDE [Concomitant]
     Indication: DIABETES MELLITUS
     Route: 065
  8. GLIPIZIDE [Concomitant]
     Indication: DIABETES MELLITUS
     Route: 065
  9. NITROFURANTOIN [Concomitant]
     Indication: URINARY TRACT INFECTION
     Route: 065
  10. TRAMADOL [Concomitant]
     Indication: PAIN
     Route: 065

REACTIONS (3)
  - Haemorrhage intracranial [Unknown]
  - Haematuria [Unknown]
  - Coagulopathy [Unknown]
